FAERS Safety Report 5278023-2 (Version None)
Quarter: 2007Q1

REPORT INFORMATION
  Report Type: 
  Country: None (occurrence: None)
  Receive Date: 20070321
  Receipt Date: 20070305
  Transmission Date: 20070707
  Serious: Yes (Life-Threatening, Other)
  Sender: FDA-Public Use
  Company Number: 2007US000469

PATIENT
  Age: 11 Year
  Sex: Male

DRUGS (5)
  1. AMBISOME [Suspect]
     Dosage: SEE IMAGE
     Route: 041
     Dates: start: 20070107, end: 20070112
  2. AMBISOME [Suspect]
     Dosage: SEE IMAGE
     Route: 041
     Dates: start: 20070220
  3. MEROPENEM (MEROPENEM) [Concomitant]
  4. VANCOMYCIN HYDROCHLORIDE [Concomitant]
  5. ACYCLOVIR [Concomitant]

REACTIONS (2)
  - HEPATOTOXICITY [None]
  - RASH [None]
